FAERS Safety Report 24329173 (Version 2)
Quarter: 2024Q3

REPORT INFORMATION
  Report Type: Spontaneous
  Country: CA (occurrence: CA)
  Receive Date: 20240917
  Receipt Date: 20240923
  Transmission Date: 20241017
  Serious: Yes (Hospitalization, Other)
  Sender: PFIZER
  Company Number: CA-PFIZER INC-202400257520

PATIENT
  Age: 37 Year
  Sex: Female

DRUGS (2)
  1. METHOTREXATE SODIUM [Suspect]
     Active Substance: METHOTREXATE SODIUM
     Dosage: 15 MG
     Route: 058
     Dates: start: 20170613
  2. REMICADE [Concomitant]
     Active Substance: INFLIXIMAB
     Dosage: UNK

REACTIONS (23)
  - Nephrolithiasis [Unknown]
  - Myocarditis [Unknown]
  - Anal abscess [Unknown]
  - Rheumatoid arthritis [Not Recovered/Not Resolved]
  - Crohn^s disease [Unknown]
  - Pseudopolyp [Unknown]
  - Anorectal disorder [Not Recovered/Not Resolved]
  - Anal fistula [Unknown]
  - Drug ineffective [Unknown]
  - Proctitis [Unknown]
  - Troponin increased [Unknown]
  - Chest pain [Recovering/Resolving]
  - Dysphagia [Recovering/Resolving]
  - Vomiting [Recovering/Resolving]
  - Oesophageal discomfort [Recovering/Resolving]
  - Antinuclear antibody positive [Unknown]
  - Psoriasis [Recovering/Resolving]
  - White blood cell count increased [Unknown]
  - Blood creatinine decreased [Unknown]
  - Blood potassium decreased [Unknown]
  - Blood alkaline phosphatase increased [Unknown]
  - Eosinophil count increased [Unknown]
  - Off label use [Unknown]

NARRATIVE: CASE EVENT DATE: 20170613
